FAERS Safety Report 8336359-2 (Version None)
Quarter: 2012Q2

REPORT INFORMATION
  Report Type: 
  Country: None (occurrence: None)
  Receive Date: 20120504
  Receipt Date: 20120426
  Transmission Date: 20120825
  Serious: Yes (Other)
  Sender: FDA-Public Use
  Company Number: PHFR2012GB002645

PATIENT
  Age: 68 Year
  Sex: Female

DRUGS (1)
  1. TEGRETOL [Suspect]
     Indication: BACK PAIN

REACTIONS (2)
  - FRACTURE [None]
  - OSTEOPOROSIS [None]
